FAERS Safety Report 9773120 (Version 4)
Quarter: 2014Q2

REPORT INFORMATION
  Report Type: Spontaneous
  Country: US (occurrence: US)
  Receive Date: 20131219
  Receipt Date: 20140403
  Transmission Date: 20141212
  Serious: Yes (Death, Hospitalization)
  Sender: FDA-Public Use
  Company Number: US-TMC-CABO-13003739

PATIENT
  Age: 21 Year
  Sex: Male

DRUGS (7)
  1. COMETRIQ [Suspect]
     Indication: BONE CANCER
     Dosage: 60 MG PO QD AND 80 MG PO QD, ON ALTERNATING WEEKS (60/80/60 THEN 80/60/80, REPEATED)
     Route: 048
     Dates: start: 20131024, end: 20131210
  2. DILAUDID [Concomitant]
  3. OXYCONTIN [Concomitant]
  4. MEGACE [Concomitant]
  5. MARINOL [Concomitant]
  6. METOPROLOL [Concomitant]
  7. FLUCONAZOL [Concomitant]

REACTIONS (6)
  - Death [Fatal]
  - Pneumothorax [Unknown]
  - Sepsis [Unknown]
  - Pneumonia [Unknown]
  - Infection [Unknown]
  - Off label use [Unknown]
